FAERS Safety Report 4948445-5 (Version None)
Quarter: 2006Q1

REPORT INFORMATION
  Report Type: 
  Country: None (occurrence: None)
  Receive Date: 20060314
  Receipt Date: 20060302
  Transmission Date: 20060701
  Serious: Yes (Other)
  Sender: FDA-Public Use
  Company Number: 2006017260

PATIENT
  Age: 56 Year
  Sex: Female
  Weight: 97 kg

DRUGS (4)
  1. SOMAVERT [Suspect]
     Indication: ACROMEGALY
     Dosage: 10 MG (10 MG, DAILY), SUBCUTANEOUS
     Route: 058
     Dates: start: 20060119, end: 20060130
  2. LEVOTHYROXINE SODIUM [Concomitant]
  3. AMLODIPINE/BENAZEPRIL (AMLODIPINE, BENAZEPRIL) [Concomitant]
  4. CLONAZEPAM (CLONZEPAM) [Concomitant]

REACTIONS (4)
  - HYPERSENSITIVITY [None]
  - INJECTION SITE URTICARIA [None]
  - LATEX ALLERGY [None]
  - PYREXIA [None]
